FAERS Safety Report 24223511 (Version 1)
Quarter: 2024Q3

REPORT INFORMATION
  Report Type: Spontaneous
  Country: US (occurrence: None)
  Receive Date: 20240819
  Receipt Date: 20240819
  Transmission Date: 20241017
  Serious: Yes (Other)
  Sender: ASTRAZENECA
  Company Number: 2024A184973

PATIENT
  Age: 68 Year
  Sex: Female

DRUGS (2)
  1. FARXIGA [Suspect]
     Active Substance: DAPAGLIFLOZIN PROPANEDIOL
     Route: 048
  2. OXYGEN [Concomitant]
     Active Substance: OXYGEN
     Dosage: 24/7

REACTIONS (15)
  - Arrhythmia [Unknown]
  - Illness [Unknown]
  - Oropharyngeal pain [Recovered/Resolved]
  - Pruritus [Recovered/Resolved]
  - Nausea [Unknown]
  - Dizziness [Not Recovered/Not Resolved]
  - Oedema [Not Recovered/Not Resolved]
  - Fatigue [Not Recovered/Not Resolved]
  - Urine sodium decreased [Not Recovered/Not Resolved]
  - Urine potassium increased [Not Recovered/Not Resolved]
  - Urine magnesium increased [Not Recovered/Not Resolved]
  - Blood sodium decreased [Unknown]
  - Blood potassium decreased [Unknown]
  - Blood magnesium decreased [Unknown]
  - Intentional product misuse [Unknown]
